FAERS Safety Report 7333146-9 (Version None)
Quarter: 2011Q1

REPORT INFORMATION
  Report Type: 
  Country: None (occurrence: None)
  Receive Date: 20110222
  Receipt Date: 20110216
  Transmission Date: 20110831
  Serious: Yes (Hospitalization, Disabling, Other)
  Sender: FDA-Public Use
  Company Number: ABR_00018_2011

PATIENT
  Age: 31 Year
  Sex: Female

DRUGS (2)
  1. RIGEVIDON 21+ + (ETHINYLESTRADIOL, FERROUS FUMARATE, LEVONORGESTREL) [Concomitant]
  2. ERYTHROMYCIN [Suspect]
     Indication: LARYNGITIS
     Dosage: (500 MG (500 MG) ORAL)
     Route: 048
     Dates: start: 20110118, end: 20110120

REACTIONS (4)
  - OLIGODIPSIA [None]
  - HYPOPHAGIA [None]
  - MOUTH ULCERATION [None]
  - CHAPPED LIPS [None]
